FAERS Safety Report 19355348 (Version 1)
Quarter: 2021Q2

REPORT INFORMATION
  Report Type: Spontaneous
  Country: US (occurrence: US)
  Receive Date: 20210601
  Receipt Date: 20210601
  Transmission Date: 20210717
  Serious: Yes (Other)
  Sender: FDA-Public Use
  Company Number: None

PATIENT
  Age: 41 Year
  Sex: Female
  Weight: 48.6 kg

DRUGS (1)
  1. SULFAMETHOX?TMP DS TABS #6 [Suspect]
     Active Substance: SULFAMETHOXAZOLE\TRIMETHOPRIM
     Indication: URINARY TRACT INFECTION
     Dosage: ?          OTHER STRENGTH:IDK;QUANTITY:1 TABLET(S);?
     Route: 048

REACTIONS (11)
  - Head injury [None]
  - Confusional state [None]
  - Diarrhoea [None]
  - Hyperhidrosis [None]
  - Fall [None]
  - Fear [None]
  - Syncope [None]
  - Nausea [None]
  - Vomiting [None]
  - Retching [None]
  - Sleep disorder [None]

NARRATIVE: CASE EVENT DATE: 20210524
